FAERS Safety Report 26120868 (Version 1)
Quarter: 2025Q4

REPORT INFORMATION
  Report Type: Spontaneous
  Country: US (occurrence: None)
  Receive Date: 20251203
  Receipt Date: 20251203
  Transmission Date: 20260118
  Serious: No
  Sender: FDA-CTU
  Company Number: None

PATIENT
  Age: 65 Year
  Sex: Female
  Weight: 55.6 kg

DRUGS (1)
  1. LORBRENA [Suspect]
     Active Substance: LORLATINIB
     Indication: Lung carcinoma cell type unspecified stage 0
     Dosage: 100 MG DAILY  ORAL ?
     Route: 048
     Dates: start: 20251013

REACTIONS (7)
  - Arthralgia [None]
  - Arthralgia [None]
  - Hypoaesthesia [None]
  - Hypoaesthesia oral [None]
  - Vision blurred [None]
  - Incontinence [None]
  - Low density lipoprotein increased [None]

NARRATIVE: CASE EVENT DATE: 20251013
